FAERS Safety Report 13164660 (Version 2)
Quarter: 2017Q2

REPORT INFORMATION
  Report Type: Report from Study
  Country: US (occurrence: US)
  Receive Date: 20170130
  Receipt Date: 20170404
  Transmission Date: 20170830
  Serious: Yes (Hospitalization)
  Sender: FDA-Public Use
  Company Number: US-GILEAD-2017-0255116

PATIENT
  Age: 80 Year
  Sex: Female

DRUGS (7)
  1. AMBRISENTAN [Suspect]
     Active Substance: AMBRISENTAN
     Indication: PULMONARY ARTERIAL HYPERTENSION
     Dosage: 10 MG, QD
     Route: 065
     Dates: start: 20161122, end: 20170125
  2. MULTIVITAMINS                      /00116001/ [Concomitant]
  3. AMBRISENTAN [Suspect]
     Active Substance: AMBRISENTAN
     Dosage: 5 MG, QD
     Route: 065
  4. KCL [Concomitant]
     Active Substance: POTASSIUM CHLORIDE
  5. FUROSEMIDE. [Concomitant]
     Active Substance: FUROSEMIDE
  6. WARFARIN [Concomitant]
     Active Substance: WARFARIN
  7. ALBUTEROL                          /00139501/ [Concomitant]
     Active Substance: ALBUTEROL

REACTIONS (7)
  - Wrong technique in product usage process [Recovered/Resolved]
  - Vision blurred [Recovered/Resolved]
  - Intentional product use issue [Recovered/Resolved]
  - Rash [Not Recovered/Not Resolved]
  - Dizziness [Recovered/Resolved]
  - Asthma [Recovered/Resolved]
  - Presyncope [Recovered/Resolved]

NARRATIVE: CASE EVENT DATE: 20161122
